FAERS Safety Report 6653978-X (Version None)
Quarter: 2010Q1

REPORT INFORMATION
  Report Type: 
  Country: None (occurrence: None)
  Receive Date: 20100326
  Receipt Date: 20100326
  Transmission Date: 20100710
  Serious: Yes (Other)
  Sender: FDA-Public Use
  Company Number: IT-TEVA-185752ISR

PATIENT
  Age: 23 Year
  Sex: Male

DRUGS (3)
  1. MESALAZINE [Suspect]
     Indication: COLITIS ULCERATIVE
     Route: 054
  2. MESALAZINE [Suspect]
     Route: 048
  3. SALICYLIC ACID [Suspect]
     Indication: INFLUENZA

REACTIONS (1)
  - PLEURISY [None]
